FAERS Safety Report 15752085 (Version 3)
Quarter: 2019Q1

REPORT INFORMATION
  Report Type: Report from Study
  Country: US (occurrence: US)
  Receive Date: 20181221
  Receipt Date: 20190221
  Transmission Date: 20190417
  Serious: Yes (Death)
  Sender: FDA-Public Use
  Company Number: US-ACTELION-A-NJ2016-143599

PATIENT
  Age: 73 Year
  Sex: Female

DRUGS (3)
  1. UPTRAVI [Suspect]
     Active Substance: SELEXIPAG
     Indication: PULMONARY ARTERIAL HYPERTENSION
     Dosage: UNK
     Route: 048
     Dates: start: 20160910, end: 201610
  2. ALDACTONE [Concomitant]
     Active Substance: SPIRONOLACTONE
  3. OPSUMIT [Suspect]
     Active Substance: MACITENTAN
     Indication: PULMONARY ARTERIAL HYPERTENSION
     Dosage: 10 MG, QD
     Route: 048
     Dates: start: 20160715, end: 20181112

REACTIONS (8)
  - Walking distance test abnormal [Unknown]
  - Headache [Recovered/Resolved]
  - Treatment noncompliance [Unknown]
  - General physical health deterioration [Unknown]
  - Condition aggravated [Recovered/Resolved]
  - Oxygen saturation decreased [Unknown]
  - Pulmonary arterial hypertension [Fatal]
  - Dyspnoea exertional [Recovered/Resolved]

NARRATIVE: CASE EVENT DATE: 20160910
